FAERS Safety Report 11403450 (Version 2)
Quarter: 2015Q3

REPORT INFORMATION
  Report Type: Spontaneous
  Country: DE (occurrence: DE)
  Receive Date: 20150821
  Receipt Date: 20150922
  Transmission Date: 20151125
  Serious: Yes (Hospitalization)
  Sender: FDA-Public Use
  Company Number: DE-AMGEN-DEUSP2015084917

PATIENT
  Age: 68 Year
  Sex: Female
  Weight: 77 kg

DRUGS (13)
  1. BELOKEN [Concomitant]
     Indication: HYPERTENSION
     Dosage: 47.50 MG, QD
     Route: 048
     Dates: start: 20140311
  2. CARFILZOMIB [Suspect]
     Active Substance: CARFILZOMIB
     Indication: PLASMA CELL MYELOMA
     Dosage: 38 MG, QD
     Route: 042
     Dates: start: 20150622, end: 20150623
  3. CARFILZOMIB [Suspect]
     Active Substance: CARFILZOMIB
     Dosage: 20 MG/M2, QD
     Route: 042
     Dates: start: 20150831
  4. DEXAMETHASON                       /00016001/ [Concomitant]
     Active Substance: DEXAMETHASONE
     Dosage: 20 MG, QD
     Route: 048
     Dates: start: 20150622, end: 20150803
  5. MARCUMAR [Concomitant]
     Active Substance: PHENPROCOUMON
     Indication: THROMBOSIS PROPHYLAXIS
     Dosage: UNK
     Route: 048
     Dates: start: 20140311
  6. CARFILZOMIB [Suspect]
     Active Substance: CARFILZOMIB
     Dosage: 51.30 MG, QD
     Route: 042
     Dates: start: 20150720, end: 20150721
  7. CARFILZOMIB [Suspect]
     Active Substance: CARFILZOMIB
     Dosage: 51.30 MG, QD
     Route: 042
     Dates: start: 20150728, end: 20150729
  8. TORASEMID [Concomitant]
     Active Substance: TORSEMIDE
     Indication: POLYURIA
     Dosage: 15 MG, QD
     Route: 048
     Dates: start: 20150812
  9. HYDROCHLOROTHIAZIDE. [Concomitant]
     Active Substance: HYDROCHLOROTHIAZIDE
     Indication: POLYURIA
     Dosage: 12.5 MG, QD
     Route: 048
     Dates: start: 20150814
  10. CARFILZOMIB [Suspect]
     Active Substance: CARFILZOMIB
     Dosage: 38 MG, QD
     Route: 042
     Dates: start: 20150629, end: 20150630
  11. CARFILZOMIB [Suspect]
     Active Substance: CARFILZOMIB
     Dosage: 38 MG, QD
     Route: 042
     Dates: start: 20150706, end: 20150707
  12. CARFILZOMIB [Suspect]
     Active Substance: CARFILZOMIB
     Dosage: 51.30 MG, QD
     Route: 042
     Dates: start: 20150803, end: 20150804
  13. MST                                /00021210/ [Concomitant]
     Indication: BONE PAIN
     Dosage: 10 MG, QD
     Route: 048
     Dates: start: 20150717

REACTIONS (1)
  - Stasis dermatitis [Recovered/Resolved]

NARRATIVE: CASE EVENT DATE: 20150811
